FAERS Safety Report 4791055-3 (Version None)
Quarter: 2005Q4

REPORT INFORMATION
  Report Type: 
  Country: None (occurrence: None)
  Receive Date: 20051005
  Receipt Date: 20050919
  Transmission Date: 20060501
  Serious: Yes (Death, Hospitalization)
  Sender: FDA-Public Use
  Company Number: DSA_27129_2005

PATIENT
  Age: 51 Year
  Sex: Male

DRUGS (5)
  1. LORAZEPAM [Suspect]
     Dosage: DF PO
     Route: 048
     Dates: end: 20040724
  2. AMOXICILLIN [Suspect]
     Indication: PNEUMONIA
     Dosage: DF PO
     Route: 048
     Dates: start: 20050722, end: 20050724
  3. KETOPROFEN [Suspect]
     Indication: CHEST PAIN
     Dosage: DF PO
     Route: 048
     Dates: start: 20040722, end: 20040724
  4. DOLIPRANE [Suspect]
     Indication: CHEST PAIN
     Dosage: DF PO
     Route: 048
     Dates: start: 20040722, end: 20040727
  5. TAREG [Suspect]
     Dosage: DF PO
     Route: 048
     Dates: end: 20040724

REACTIONS (11)
  - CHEST PAIN [None]
  - COUGH [None]
  - HAEMODYNAMIC INSTABILITY [None]
  - LEUKOPENIA [None]
  - MULTI-ORGAN FAILURE [None]
  - PNEUMONIA [None]
  - PNEUMONIA LEGIONELLA [None]
  - RENAL FAILURE ACUTE [None]
  - RESPIRATORY DISORDER [None]
  - SEPTIC SHOCK [None]
  - TACHYPNOEA [None]
